FAERS Safety Report 7985022-6 (Version None)
Quarter: 2011Q4

REPORT INFORMATION
  Report Type: 
  Country: None (occurrence: None)
  Receive Date: 20111216
  Receipt Date: 20111118
  Transmission Date: 20120403
  Serious: No
  Sender: FDA-Public Use
  Company Number: US-ALLERGAN-1115243US

PATIENT
  Age: 60 Year
  Sex: Female

DRUGS (2)
  1. LATISSE [Suspect]
     Indication: HYPOTRICHOSIS
     Dosage: 4 GTT, QHS
     Route: 061
     Dates: start: 20100801, end: 20101001
  2. LATISSE [Suspect]
     Indication: EYELASH THICKENING

REACTIONS (1)
  - DRUG INEFFECTIVE [None]
